FAERS Safety Report 19709539 (Version 2)
Quarter: 2021Q3

REPORT INFORMATION
  Report Type: Spontaneous
  Country: DE (occurrence: DE)
  Receive Date: 20210817
  Receipt Date: 20210831
  Transmission Date: 20211014
  Serious: Yes (Hospitalization)
  Sender: FDA-Public Use
  Company Number: DE-MYLANLABS-2021M1050855

PATIENT
  Age: 51 Year
  Sex: Male

DRUGS (12)
  1. CYTOTECT [Suspect]
     Active Substance: HUMAN CYTOMEGALOVIRUS IMMUNE GLOBULIN
     Dosage: 10000 INTERNATIONAL UNIT, QD
     Route: 042
  2. CERTICAN [Suspect]
     Active Substance: EVEROLIMUS
     Indication: IMMUNOSUPPRESSION
     Dosage: TARGET LEVEL  3?5 NG/ML
     Route: 065
  3. PREDNISOLONE. [Suspect]
     Active Substance: PREDNISOLONE
     Indication: IMMUNOSUPPRESSION
     Dosage: UNK
     Route: 065
  4. CYTOTECT [Suspect]
     Active Substance: HUMAN CYTOMEGALOVIRUS IMMUNE GLOBULIN
     Indication: CYTOMEGALOVIRUS INFECTION
     Dosage: 10000 U, 1/WEEK
  5. CYTOTECT [Suspect]
     Active Substance: HUMAN CYTOMEGALOVIRUS IMMUNE GLOBULIN
     Dosage: 5000 INTERNATIONAL UNIT, QW
     Route: 042
  6. MYFORTIC [Suspect]
     Active Substance: MYCOPHENOLATE SODIUM
     Indication: IMMUNOSUPPRESSION
     Dosage: 720 MG, BID
     Route: 065
  7. TAZOBAC [Suspect]
     Active Substance: PIPERACILLIN SODIUM\TAZOBACTAM SODIUM
     Indication: PYREXIA
     Dosage: UNK
     Route: 065
  8. VALCYTE [Suspect]
     Active Substance: VALGANCICLOVIR HYDROCHLORIDE
     Indication: PROPHYLAXIS
     Dosage: THERAPEUTIC DOSAGE
     Route: 048
  9. VALCYTE [Suspect]
     Active Substance: VALGANCICLOVIR HYDROCHLORIDE
     Dosage: UNK
     Route: 048
  10. SANDIMMUN [Suspect]
     Active Substance: CYCLOSPORINE
     Indication: IMMUNOSUPPRESSION
     Dosage: TARGET LEVEL 80?100 NG/ML
     Route: 065
  11. PROGRAF [Suspect]
     Active Substance: TACROLIMUS
     Indication: IMMUNOSUPPRESSION
     Dosage: 6?8 NG/ML
     Route: 065
  12. CYMEVEN                            /00784201/ [Suspect]
     Active Substance: GANCICLOVIR
     Indication: CYTOMEGALOVIRUS INFECTION
     Dosage: UNK
     Route: 042

REACTIONS (6)
  - Drug ineffective [Unknown]
  - Malaise [Unknown]
  - Pyrexia [Unknown]
  - Drug resistance [Unknown]
  - Diarrhoea [Recovered/Resolved]
  - Thrombocytopenia [Unknown]
